FAERS Safety Report 14529472 (Version 1)
Quarter: 2018Q1

REPORT INFORMATION
  Report Type: Spontaneous
  Country: US (occurrence: US)
  Receive Date: 20180214
  Receipt Date: 20180214
  Transmission Date: 20180509
  Serious: No
  Sender: FDA-Public Use
  Company Number: US-BAYER-2018-028942

PATIENT
  Age: 39 Year
  Sex: Male

DRUGS (1)
  1. BETASERON [Suspect]
     Active Substance: INTERFERON BETA-1B
     Indication: MULTIPLE SCLEROSIS
     Dosage: 0.25 MG, UNK

REACTIONS (4)
  - Disturbance in attention [None]
  - Skin reaction [Recovered/Resolved]
  - Seasonal affective disorder [None]
  - Insomnia [None]

NARRATIVE: CASE EVENT DATE: 2017
